FAERS Safety Report 13549550 (Version 2)
Quarter: 2017Q2

REPORT INFORMATION
  Report Type: Spontaneous
  Country: IT (occurrence: IT)
  Receive Date: 20170516
  Receipt Date: 20170519
  Transmission Date: 20170830
  Serious: Yes (Hospitalization)
  Sender: FDA-Public Use
  Company Number: IT-SA-2017SA083378

PATIENT
  Age: 63 Year

DRUGS (1)
  1. BCG FOR IMMUNOTHERAPY [Suspect]
     Active Substance: BACILLUS CALMETTE-GUERIN ANTIGEN, UNSPECIFIED SUBSTRAIN
     Indication: BLADDER CANCER STAGE I, WITH CANCER IN SITU
     Dosage: SIXTH DOSE (WEEKLY ADMINISTRATION OF INDUCTION CYCLES)
     Route: 043

REACTIONS (8)
  - Disseminated Bacillus Calmette-Guerin infection [Recovering/Resolving]
  - Cough [Recovering/Resolving]
  - Disseminated tuberculosis [Recovering/Resolving]
  - Hepatic infection [Recovering/Resolving]
  - Hyperpyrexia [Recovering/Resolving]
  - Pulmonary mass [Recovering/Resolving]
  - Pulmonary granuloma [Recovering/Resolving]
  - Cholestasis [Recovering/Resolving]
